FAERS Safety Report 23254843 (Version 1)
Quarter: 2023Q4

REPORT INFORMATION
  Report Type: Spontaneous
  Country: US (occurrence: US)
  Receive Date: 20231203
  Receipt Date: 20231203
  Transmission Date: 20240110
  Serious: No
  Sender: FDA-Public Use
  Company Number: US-AMNEAL PHARMACEUTICALS-2023-AMRX-01755

PATIENT
  Age: 13 Year
  Sex: Male
  Weight: 42.2 kg

DRUGS (2)
  1. ISOTRETINOIN [Suspect]
     Active Substance: ISOTRETINOIN
     Indication: Acne cystic
     Dosage: 20 MILLIGRAM, 1 /DAY (DAYS OFF WHEN SIDE EFFECTS ARE TROUBLESOME)
     Route: 048
     Dates: start: 20221019
  2. MYORISAN [Suspect]
     Active Substance: ISOTRETINOIN
     Indication: Acne cystic
     Dosage: 20 MILLIGRAM, 1 /DAY
     Route: 048
     Dates: start: 20221019

REACTIONS (7)
  - Xerosis [Not Recovered/Not Resolved]
  - Acne cystic [Unknown]
  - Pigmentation disorder [Recovering/Resolving]
  - Scar [Unknown]
  - Blood triglycerides increased [Unknown]
  - Cheilitis [Not Recovered/Not Resolved]
  - Inappropriate schedule of product administration [Unknown]

NARRATIVE: CASE EVENT DATE: 20221019
